FAERS Safety Report 18212430 (Version 7)
Quarter: 2025Q2

REPORT INFORMATION
  Report Type: Report from Study
  Country: US (occurrence: US)
  Receive Date: 20200831
  Receipt Date: 20250519
  Transmission Date: 20250717
  Serious: Yes (Other)
  Sender: TAKEDA
  Company Number: US-SHIRE-US202028020

PATIENT
  Age: 75 Year
  Sex: Female
  Weight: 59 kg

DRUGS (53)
  1. HUMAN IMMUNOGLOBULIN G [Suspect]
     Active Substance: HUMAN IMMUNOGLOBULIN G
     Indication: Immunodeficiency common variable
  2. HUMAN IMMUNOGLOBULIN G [Suspect]
     Active Substance: HUMAN IMMUNOGLOBULIN G
  3. HUMAN IMMUNOGLOBULIN G [Suspect]
     Active Substance: HUMAN IMMUNOGLOBULIN G
  4. HUMAN IMMUNOGLOBULIN G [Suspect]
     Active Substance: HUMAN IMMUNOGLOBULIN G
  5. HUMAN IMMUNOGLOBULIN G [Suspect]
     Active Substance: HUMAN IMMUNOGLOBULIN G
  6. MUPIROCIN [Concomitant]
     Active Substance: MUPIROCIN
  7. ITRACONAZOLE [Concomitant]
     Active Substance: ITRACONAZOLE
  8. BETAMETHASONE\CLOTRIMAZOLE [Concomitant]
     Active Substance: BETAMETHASONE\CLOTRIMAZOLE
  9. ACYCLOVIR [Concomitant]
     Active Substance: ACYCLOVIR
  10. NEXIUM [Concomitant]
     Active Substance: ESOMEPRAZOLE MAGNESIUM
  11. VITAMIN B6 [Concomitant]
     Active Substance: PYRIDOXINE HYDROCHLORIDE
  12. ZINC [Concomitant]
     Active Substance: ZINC
  13. VITAMIN B2 [Concomitant]
     Active Substance: RIBOFLAVIN
  14. ONDANSETRON [Concomitant]
     Active Substance: ONDANSETRON
  15. ACETAMINOPHEN [Concomitant]
     Active Substance: ACETAMINOPHEN
  16. DIPHENHYDRAMINE [Concomitant]
     Active Substance: DIPHENHYDRAMINE
  17. SODIUM CHLORIDE [Concomitant]
     Active Substance: SODIUM CHLORIDE
  18. EPINEPHRINE [Concomitant]
     Active Substance: EPINEPHRINE
  19. CYMBALTA [Concomitant]
     Active Substance: DULOXETINE HYDROCHLORIDE
  20. AMBIEN [Concomitant]
     Active Substance: ZOLPIDEM TARTRATE
  21. KETOROLAC TROMETHAMINE [Concomitant]
     Active Substance: KETOROLAC TROMETHAMINE
  22. VALIUM [Concomitant]
     Active Substance: DIAZEPAM
  23. ALPRAZOLAM [Concomitant]
     Active Substance: ALPRAZOLAM
  24. ACETAMINOPHEN\HYDROCODONE [Concomitant]
     Active Substance: ACETAMINOPHEN\HYDROCODONE
  25. VITAMIN E [Concomitant]
     Active Substance: .ALPHA.-TOCOPHEROL
  26. ALLEGRA [Concomitant]
     Active Substance: FEXOFENADINE HYDROCHLORIDE
  27. GAS-X [Concomitant]
     Active Substance: DIMETHICONE
  28. CALCIUM [Concomitant]
     Active Substance: CALCIUM
  29. NARATRIPTAN [Concomitant]
     Active Substance: NARATRIPTAN HYDROCHLORIDE
  30. CLOBETASOL PROPIONATE [Concomitant]
     Active Substance: CLOBETASOL PROPIONATE
  31. RESTASIS [Concomitant]
     Active Substance: CYCLOSPORINE
  32. ESTRADIOL [Concomitant]
     Active Substance: ESTRADIOL
  33. MIRALAX [Concomitant]
     Active Substance: POLYETHYLENE GLYCOL 3350
  34. ALIGN [Concomitant]
     Active Substance: BIFIDOBACTERIUM LONGUM SUBSP. INFANTIS
  35. LIDOCAINE [Concomitant]
     Active Substance: LIDOCAINE
  36. NAC [Concomitant]
  37. COENZYME Q10 [Concomitant]
     Active Substance: DIETARY SUPPLEMENT\UBIDECARENONE
  38. FLECTOR [Concomitant]
     Active Substance: DICLOFENAC EPOLAMINE
  39. TROMETHAMINE [Concomitant]
     Active Substance: TROMETHAMINE
  40. VORICONAZOLE [Concomitant]
     Active Substance: VORICONAZOLE
  41. VICODIN [Concomitant]
     Active Substance: ACETAMINOPHEN\HYDROCODONE BITARTRATE
  42. SKELAXIN [Concomitant]
     Active Substance: METAXALONE
  43. MODERNA COVID-19 VACCINE [Concomitant]
     Active Substance: ELASOMERAN
     Indication: Immunisation
  44. DILAUDID [Concomitant]
     Active Substance: HYDROMORPHONE HYDROCHLORIDE
  45. ZOLPIDEM [Concomitant]
     Active Substance: ZOLPIDEM TARTRATE
  46. KETOCONAZOLE [Concomitant]
     Active Substance: KETOCONAZOLE
  47. CALCIUM CITRATE [Concomitant]
     Active Substance: CALCIUM CITRATE
  48. NARATRIPTAN HYDROCHLORIDE [Concomitant]
     Active Substance: NARATRIPTAN HYDROCHLORIDE
     Dosage: UNK, 2/WEEK
  49. LIDODERM [Concomitant]
     Active Substance: LIDOCAINE
  50. TRAMADOL HCL [Concomitant]
     Active Substance: TRAMADOL HYDROCHLORIDE
  51. METAXALONE [Concomitant]
     Active Substance: METAXALONE
  52. ONDANSETRON HYDROCHLORIDE [Concomitant]
     Active Substance: ONDANSETRON HYDROCHLORIDE
  53. DIPHENHYDRAMINE HYDROCHLORIDE [Concomitant]
     Active Substance: DIPHENHYDRAMINE HYDROCHLORIDE

REACTIONS (14)
  - Spinal fracture [Unknown]
  - Fall [Unknown]
  - Skin irritation [Unknown]
  - Vulvovaginal pain [Unknown]
  - Vulvovaginal candidiasis [Unknown]
  - Fibromyalgia [Unknown]
  - Irritable bowel syndrome [Unknown]
  - Back injury [Unknown]
  - Urinary tract infection [Unknown]
  - Gastritis [Unknown]
  - Product dose omission issue [Unknown]
  - Inappropriate schedule of product administration [Unknown]
  - Rash [Unknown]
  - Back pain [Unknown]

NARRATIVE: CASE EVENT DATE: 20231030
